FAERS Safety Report 5644545-5 (Version None)
Quarter: 2008Q1

REPORT INFORMATION
  Report Type: 
  Country: None (occurrence: None)
  Receive Date: 20080229
  Receipt Date: 20070226
  Transmission Date: 20080703
  Serious: No
  Sender: FDA-Public Use
  Company Number: A0640848A

PATIENT
  Sex: Female

DRUGS (1)
  1. VALTREX [Suspect]
     Route: 048
     Dates: start: 20070221

REACTIONS (4)
  - EYE SWELLING [None]
  - FACE OEDEMA [None]
  - NASAL OEDEMA [None]
  - SKIN DISCOLOURATION [None]
